FAERS Safety Report 6659551-1 (Version None)
Quarter: 2010Q1

REPORT INFORMATION
  Report Type: 
  Country: None (occurrence: None)
  Receive Date: 20100330
  Receipt Date: 20100319
  Transmission Date: 20100710
  Serious: Yes (Death, Hospitalization)
  Sender: FDA-Public Use
  Company Number: PH-BAXTER-2010BH007795

PATIENT
  Age: 82 Year
  Sex: Male

DRUGS (2)
  1. DIANEAL [Suspect]
     Indication: PERITONEAL DIALYSIS
     Route: 033
     Dates: start: 20100317
  2. DIANEAL [Suspect]
     Route: 033
     Dates: start: 20100225, end: 20100317

REACTIONS (2)
  - CARDIAC ARREST [None]
  - DYSPNOEA [None]
